FAERS Safety Report 20057953 (Version 7)
Quarter: 2023Q1

REPORT INFORMATION
  Report Type: Spontaneous
  Country: US (occurrence: US)
  Receive Date: 20211111
  Receipt Date: 20230212
  Transmission Date: 20230417
  Serious: No
  Sender: FDA-Public Use
  Company Number: US-LUPIN PHARMACEUTICALS INC.-2021-21980

PATIENT

DRUGS (2)
  1. ALBUTEROL SULFATE [Suspect]
     Active Substance: ALBUTEROL SULFATE
     Indication: Asthma
     Dosage: UNK
     Dates: start: 202110
  2. ALBUTEROL SULFATE [Suspect]
     Active Substance: ALBUTEROL SULFATE
     Dosage: UNK (2 PUFFS EVERY 4 HOURS AS NEEDED)

REACTIONS (7)
  - Dyspnoea [Unknown]
  - Device delivery system issue [Unknown]
  - Device information output issue [Unknown]
  - Product packaging quantity issue [Unknown]
  - Product lot number issue [Unknown]
  - Product identification number issue [Unknown]
  - Drug dose omission by device [Unknown]

NARRATIVE: CASE EVENT DATE: 20211001
